FAERS Safety Report 18208469 (Version 3)
Quarter: 2020Q4

REPORT INFORMATION
  Report Type: Spontaneous
  Country: JP (occurrence: JP)
  Receive Date: 20200828
  Receipt Date: 20201125
  Transmission Date: 20210113
  Serious: Yes (Other)
  Sender: FDA-Public Use
  Company Number: JP-PFIZER INC-2020333555

PATIENT
  Age: 93 Year
  Sex: Female
  Weight: 43 kg

DRUGS (8)
  1. TEPRENONE [Concomitant]
     Active Substance: TEPRENONE
     Dosage: 50 MG, TWICE DAILY, IN THE MORNING AND EVENING
     Route: 048
     Dates: start: 20200709, end: 20200720
  2. SENNOSIDE [SENNOSIDE A+B] [Concomitant]
     Active Substance: SENNOSIDES A AND B
     Dosage: 24 MG, AS NEEDED, WHEN HAVING CONSTIPATION
     Route: 048
     Dates: start: 20200712
  3. CALONAL [Concomitant]
     Active Substance: ACETAMINOPHEN
     Dosage: 400 MG, AS NEEDED, WHEN HAVING PYREXIA AND PAIN
     Route: 048
     Dates: start: 20200717
  4. DONEPEZIL HYDROCHLORIDE OD KUNIHIRO [Concomitant]
     Dosage: 5 MG, ONCE DAILY, IN THE MORNING
     Route: 048
  5. CINAL [ASCORBIC ACID;CALCIUM PANTOTHENATE] [Concomitant]
     Dosage: 1 G, ONCE DAILY, IN THE MORNING
     Route: 048
  6. HEAVY MAGNESIUM OXIDE [Concomitant]
     Active Substance: MAGNESIUM OXIDE
     Dosage: 1 MG/DAY, UNKNOWN FREQ.
     Route: 048
  7. CELECOX [Suspect]
     Active Substance: CELECOXIB
     Indication: OSTEOARTHRITIS
     Dosage: 100 MG, TWICE DAILY, MORNING AND EVENING
     Route: 048
     Dates: start: 20200709, end: 20200720
  8. ATORVASTATIN OD [Concomitant]
     Dosage: 5 MG, ONCE DAILY, IN THE MORNING
     Route: 048

REACTIONS (1)
  - Toxic skin eruption [Recovered/Resolved]

NARRATIVE: CASE EVENT DATE: 20200719
